FAERS Safety Report 4409468-8 (Version None)
Quarter: 2004Q3

REPORT INFORMATION
  Report Type: 
  Country: None (occurrence: None)
  Receive Date: 20040723
  Receipt Date: 20040709
  Transmission Date: 20050211
  Serious: Yes (Hospitalization, Other)
  Sender: FDA-Public Use
  Company Number: FR-JNJFOC-20040301801

PATIENT
  Age: 54 Year
  Sex: Female
  Weight: 55 kg

DRUGS (6)
  1. REMICADE [Suspect]
     Indication: RHEUMATOID ARTHRITIS
     Dosage: 200 MG, INTRAVENOUS
     Route: 042
     Dates: start: 20020408, end: 20040101
  2. HYDROCORTISONE [Suspect]
     Dosage: 30 MG, 1 IN 1 DAY, ORAL
     Route: 048
  3. METHOTREXATE [Concomitant]
     Indication: RHEUMATOID ARTHRITIS
     Dosage: 15 MG 1 IN 1 WEEK,ORAL
     Route: 048
  4. FOLIC ACID [Concomitant]
  5. VOLTAREN [Concomitant]
  6. METHOTREXATE [Concomitant]

REACTIONS (4)
  - CRYPTOCOCCOSIS [None]
  - LYMPHADENOPATHY [None]
  - PAIN [None]
  - WOUND [None]
